FAERS Safety Report 9615343 (Version 1)
Quarter: 2013Q4

REPORT INFORMATION
  Report Type: Spontaneous
  Country: US (occurrence: None)
  Receive Date: 20131010
  Receipt Date: 20131010
  Transmission Date: 20140711
  Serious: Yes (Other)
  Sender: FDA-Public Use
  Company Number: None

PATIENT
  Age: 45 Year
  Sex: Female

DRUGS (1)
  1. ACTHAR GEL 80 UNITS/ML [Suspect]
     Indication: POLYMYOSITIS
     Dosage: 80 UNITS, TWICE A WEEK, SUBCUTANEOUS
     Dates: start: 20130604, end: 20131007

REACTIONS (1)
  - Drug ineffective [None]
